FAERS Safety Report 7054481-8 (Version None)
Quarter: 2010Q4

REPORT INFORMATION
  Report Type: 
  Country: None (occurrence: None)
  Receive Date: 20101020
  Receipt Date: 20101011
  Transmission Date: 20110411
  Serious: Yes (Other)
  Sender: FDA-Public Use
  Company Number: US-PFIZER INC-2010125012

PATIENT
  Sex: Male
  Weight: 99.773 kg

DRUGS (5)
  1. LYRICA [Suspect]
     Indication: FIBROMYALGIA
     Dosage: 50 MG, 2X/DAY
     Route: 048
  2. LYRICA [Suspect]
     Indication: HYPOAESTHESIA
  3. LYRICA [Suspect]
  4. METOPROLOL [Concomitant]
     Dosage: UNK
  5. METOLAZONE [Concomitant]
     Dosage: UNK

REACTIONS (2)
  - RENAL DISORDER [None]
  - WITHDRAWAL SYNDROME [None]
